FAERS Safety Report 13354519 (Version 1)
Quarter: 2017Q1

REPORT INFORMATION
  Report Type: Spontaneous
  Country: US (occurrence: US)
  Receive Date: 20170320
  Receipt Date: 20170320
  Transmission Date: 20170429
  Serious: No
  Sender: FDA-Public Use
  Company Number: None

PATIENT
  Age: 60 Year
  Sex: Male

DRUGS (1)
  1. EPCLUSA [Suspect]
     Active Substance: SOFOSBUVIR\VELPATASVIR
     Indication: CHRONIC HEPATITIS C

REACTIONS (4)
  - Nasopharyngitis [None]
  - Respiratory tract congestion [None]
  - Cough [None]
  - Fatigue [None]

NARRATIVE: CASE EVENT DATE: 20170320
